FAERS Safety Report 6709634-2 (Version None)
Quarter: 2010Q2

REPORT INFORMATION
  Report Type: 
  Country: None (occurrence: None)
  Receive Date: 20100503
  Receipt Date: 20100503
  Transmission Date: 20101027
  Serious: No
  Sender: FDA-Public Use
  Company Number: None

PATIENT
  Age: 4 Year
  Sex: Female
  Weight: 14.9687 kg

DRUGS (1)
  1. CHILDREN'S TYLENOL PLUS COUGH AND RUNNY NOSE [Suspect]
     Indication: SINUSITIS
     Dosage: 1 TSP 1X A DAY PO
     Route: 048
     Dates: start: 20100420, end: 20100429

REACTIONS (4)
  - FEELING JITTERY [None]
  - PRODUCT CONTAMINATION [None]
  - PRODUCT QUALITY ISSUE [None]
  - PSYCHOMOTOR HYPERACTIVITY [None]
